FAERS Safety Report 21925457 (Version 2)
Quarter: 2023Q1

REPORT INFORMATION
  Report Type: Spontaneous
  Country: FR (occurrence: FR)
  Receive Date: 20230130
  Receipt Date: 20230206
  Transmission Date: 20230417
  Serious: Yes (Other)
  Sender: FDA-Public Use
  Company Number: FR-JNJFOC-20221007208

PATIENT

DRUGS (2)
  1. ERDAFITINIB [Suspect]
     Active Substance: ERDAFITINIB
     Indication: Product used for unknown indication
     Dosage: TREATMENT WAS INTERRUPTED ON 03-JAN-2023.
     Route: 065
     Dates: end: 20230103
  2. ERDAFITINIB [Suspect]
     Active Substance: ERDAFITINIB
     Route: 065

REACTIONS (3)
  - Neuropathy peripheral [Unknown]
  - Skin toxicity [Unknown]
  - Dry mouth [Unknown]
